FAERS Safety Report 5078726-9 (Version None)
Quarter: 2006Q3

REPORT INFORMATION
  Report Type: 
  Country: None (occurrence: None)
  Receive Date: 20060720
  Receipt Date: 20060601
  Transmission Date: 20061208
  Serious: Yes (Other)
  Sender: FDA-Public Use
  Company Number: HQWYE911605JUN06

PATIENT
  Age: 66 Year
  Sex: Female
  Weight: 79.45 kg

DRUGS (5)
  1. ADVIL PM [Suspect]
     Indication: BACK PAIN
  2. ADVIL PM [Suspect]
     Indication: PAIN IN EXTREMITY
  3. ZOCOR [Concomitant]
  4. GLUCOTROL [Concomitant]
  5. ALEVE [Concomitant]

REACTIONS (1)
  - DRUG INEFFECTIVE [None]
